FAERS Safety Report 8769593 (Version 1)
Quarter: 2012Q4

REPORT INFORMATION
  Report Type: 
  Country: US (occurrence: US)
  Receive Date: 20120904
  Receipt Date: 20120904
  Transmission Date: 20130627
  Serious: No
  Sender: FDA-Public Use
  Company Number: US-PFIZER INC-2012217280

PATIENT
  Age: 52 Year
  Sex: Male

DRUGS (3)
  1. GEODON [Suspect]
     Indication: MOOD ALTERED
     Dosage: 80 mg, 2x/day
     Route: 048
     Dates: start: 20040630
  2. GEODON [Suspect]
     Dosage: 240 mg, UNK daily
     Route: 048
     Dates: start: 20060413
  3. GEODON [Suspect]
     Dosage: 160 mg, UNK
     Route: 048

REACTIONS (1)
  - Tremor [Unknown]
